FAERS Safety Report 8890035 (Version 3)
Quarter: 2013Q1

REPORT INFORMATION
  Report Type: Spontaneous
  Country: AR (occurrence: AR)
  Receive Date: 20121107
  Receipt Date: 20130123
  Transmission Date: 20140127
  Serious: Yes (Other)
  Sender: FDA-Public Use
  Company Number: AR-BAYER-2012-113018

PATIENT
  Age: 59 Year
  Sex: Female

DRUGS (11)
  1. BETAFERON [Suspect]
     Indication: MULTIPLE SCLEROSIS
     Dosage: UNK UNK, Q3WK
     Route: 058
     Dates: start: 1997
  2. CARBAMAZEPINE [Concomitant]
     Dosage: 400 MG, TID
     Dates: start: 2007
  3. METHADONE [Concomitant]
     Dosage: UNK
     Dates: start: 2007
  4. OMEPRAZOLE [Concomitant]
     Dosage: UNK
     Dates: start: 2007
  5. SINVASTATINA MEPHA [Concomitant]
     Dosage: UNK
     Dates: start: 2007
  6. LIORESAL [Concomitant]
     Dosage: 10 MG, QD
  7. EZETIMIBE [Concomitant]
     Dosage: 10 MG, QD
  8. AMANTADINE [Concomitant]
     Dosage: 100 MG, BID
  9. ACETYLSALICYLIC ACID({=100 MG) [Concomitant]
     Dosage: 100 MG, QD
  10. PREGABALIN [Concomitant]
     Dosage: 125 MG, TID
  11. TRYPTANOL [Concomitant]
     Dosage: 25 MG, QD

REACTIONS (6)
  - Haemochromatosis [Not Recovered/Not Resolved]
  - Skin discolouration [Not Recovered/Not Resolved]
  - Hepatic function abnormal [Not Recovered/Not Resolved]
  - Transferrin increased [Not Recovered/Not Resolved]
  - Blood cholesterol increased [None]
  - Lung neoplasm [Not Recovered/Not Resolved]
